FAERS Safety Report 20129729 (Version 1)
Quarter: 2021Q4

REPORT INFORMATION
  Report Type: Spontaneous
  Country: US (occurrence: None)
  Receive Date: 20211129
  Receipt Date: 20211129
  Transmission Date: 20220303
  Serious: Yes (Life-Threatening, Hospitalization, Other)
  Sender: FDA-Public Use
  Company Number: None

PATIENT
  Age: 84 Year
  Sex: Female
  Weight: 68.3 kg

DRUGS (4)
  1. BARICITINIB [Suspect]
     Active Substance: BARICITINIB
     Indication: COVID-19
     Dates: start: 20211102, end: 20211111
  2. DEXAMETHASONE [Suspect]
     Active Substance: DEXAMETHASONE
     Indication: COVID-19
     Dates: start: 20211102, end: 20211111
  3. BARICITINIB [Concomitant]
     Active Substance: BARICITINIB
     Dates: start: 20211102, end: 20211111
  4. DEXAMETHASONE [Concomitant]
     Active Substance: DEXAMETHASONE
     Dates: start: 20211102, end: 20211111

REACTIONS (5)
  - Diverticulitis [None]
  - Diverticulitis intestinal perforated [None]
  - Colonic abscess [None]
  - Necrosis [None]
  - Mucormycosis [None]

NARRATIVE: CASE EVENT DATE: 20211118
